FAERS Safety Report 14012133 (Version 1)
Quarter: 2017Q3

REPORT INFORMATION
  Report Type: Spontaneous
  Country: US (occurrence: None)
  Receive Date: 20170926
  Receipt Date: 20170926
  Transmission Date: 20171128
  Serious: No
  Sender: FDA-Public Use
  Company Number: None

PATIENT
  Age: 50 Year
  Sex: Male

DRUGS (1)
  1. COPAXONE [Suspect]
     Active Substance: GLATIRAMER ACETATE

REACTIONS (5)
  - Injection site pain [None]
  - Injection site erythema [None]
  - Injection site pruritus [None]
  - Injection site reaction [None]
  - Injection site warmth [None]

NARRATIVE: CASE EVENT DATE: 20170926
